FAERS Safety Report 18689593 (Version 1)
Quarter: 2020Q4

REPORT INFORMATION
  Report Type: Spontaneous
  Country: US (occurrence: US)
  Receive Date: 20201231
  Receipt Date: 20201231
  Transmission Date: 20210114
  Serious: Yes (Other)
  Sender: FDA-Public Use
  Company Number: US-TEVA-2020-US-1864174

PATIENT
  Sex: Female

DRUGS (1)
  1. BUPROPION HYDROCHLORIDE ACTAVIS [Suspect]
     Active Substance: BUPROPION HYDROCHLORIDE
     Dosage: DOSE: TAKING 450 MG PER DAY, ONE 300 MG AND ONE 150 MG
     Route: 065

REACTIONS (3)
  - Arteriosclerosis [Not Recovered/Not Resolved]
  - Rheumatoid arthritis [Not Recovered/Not Resolved]
  - Hypertension [Not Recovered/Not Resolved]
